FAERS Safety Report 4542919-7 (Version None)
Quarter: 2004Q4

REPORT INFORMATION
  Report Type: 
  Country: None (occurrence: None)
  Receive Date: 20041229
  Receipt Date: 20041216
  Transmission Date: 20050328
  Serious: Yes (Hospitalization)
  Sender: FDA-Public Use
  Company Number: 2004114947

PATIENT
  Age: 64 Year
  Sex: Female
  Weight: 58.9676 kg

DRUGS (1)
  1. XANAX [Suspect]
     Indication: PANIC ATTACK
     Dosage: (0.25 MG), ORAL
     Route: 048
     Dates: start: 19940101

REACTIONS (9)
  - ANXIETY [None]
  - ARTHRALGIA [None]
  - DEPENDENCE [None]
  - DYSPEPSIA [None]
  - FATIGUE [None]
  - MOVEMENT DISORDER [None]
  - PAIN IN EXTREMITY [None]
  - PARAESTHESIA [None]
  - STRESS SYMPTOMS [None]
